FAERS Safety Report 6525245-6 (Version None)
Quarter: 2010Q1

REPORT INFORMATION
  Report Type: 
  Country: None (occurrence: None)
  Receive Date: 20100104
  Receipt Date: 20091221
  Transmission Date: 20100710
  Serious: Yes (Other)
  Sender: FDA-Public Use
  Company Number: US-ROCHE-581665

PATIENT
  Sex: Male
  Weight: 88.5 kg

DRUGS (8)
  1. ACCUTANE [Suspect]
     Indication: ACNE
     Route: 048
     Dates: start: 20010901, end: 20011001
  2. ACCUTANE [Suspect]
     Dosage: FREQUENCY INCREASED.
     Route: 048
     Dates: start: 20011003, end: 20011101
  3. ACCUTANE [Suspect]
     Dosage: ON 28 DEC 2001, ISOTRETINOING WAS CONTINUED.
     Route: 048
     Dates: start: 20011201
  4. ACCUTANE [Suspect]
     Route: 048
     Dates: start: 20020201, end: 20020501
  5. CLARAVIS [Suspect]
     Indication: ACNE
     Route: 048
     Dates: start: 20030701, end: 20030731
  6. AMNESTEEM [Suspect]
     Indication: ACNE
     Route: 048
     Dates: start: 20030801, end: 20040901
  7. SOTRET [Suspect]
     Indication: ACNE
     Route: 048
     Dates: start: 20070831, end: 20071226
  8. SOTRET [Suspect]
     Dosage: TAKEN ISOTRETINOIN 40 MG ALTERNATING WITH 80 MG
     Route: 048
     Dates: start: 20080125, end: 20080225

REACTIONS (25)
  - ABDOMINAL DISCOMFORT [None]
  - ANHEDONIA [None]
  - ANXIETY [None]
  - ARTHRALGIA [None]
  - ASTHENIA [None]
  - CROHN'S DISEASE [None]
  - DEPRESSION [None]
  - DUODENITIS [None]
  - FOOD POISONING [None]
  - GASTRITIS [None]
  - GASTROENTERITIS [None]
  - GASTROINTESTINAL DISORDER [None]
  - GASTROOESOPHAGEAL REFLUX DISEASE [None]
  - ILL-DEFINED DISORDER [None]
  - INFLAMMATORY BOWEL DISEASE [None]
  - INTESTINAL OBSTRUCTION [None]
  - IRRITABILITY [None]
  - OESOPHAGITIS [None]
  - PANIC ATTACK [None]
  - PEPTIC ULCER [None]
  - QUALITY OF LIFE DECREASED [None]
  - RESTLESSNESS [None]
  - SLEEP DISORDER [None]
  - STRESS [None]
  - WEIGHT DECREASED [None]
